FAERS Safety Report 13122264 (Version 6)
Quarter: 2020Q1

REPORT INFORMATION
  Report Type: Spontaneous
  Country: US (occurrence: US)
  Receive Date: 20170117
  Receipt Date: 20200218
  Transmission Date: 20200409
  Serious: No
  Sender: FDA-Public Use
  Company Number: US-PFIZER INC-2017010204

PATIENT
  Age: 58 Year
  Sex: Male
  Weight: 100 kg

DRUGS (9)
  1. HYDROCODONE [Concomitant]
     Active Substance: HYDROCODONE
     Indication: PAIN
  2. PRAVASTATIN. [Concomitant]
     Active Substance: PRAVASTATIN
     Indication: MYOCARDIAL INFARCTION
  3. HYDROCODONE [Concomitant]
     Active Substance: HYDROCODONE
     Indication: SPINAL STENOSIS
     Dosage: 5-325MG ONE TABLET BY MOUTH TWICE A DAY AS NEEDED
     Route: 048
     Dates: start: 2015
  4. VIAGRA [Suspect]
     Active Substance: SILDENAFIL CITRATE
     Dosage: 100 MG, AS NEEDED (PRN)
     Dates: start: 201609
  5. VIAGRA [Suspect]
     Active Substance: SILDENAFIL CITRATE
     Dosage: TAKE 1 TABLET (100MG TOTAL) BY MOUTH DAILY
     Route: 048
  6. VIAGRA [Suspect]
     Active Substance: SILDENAFIL CITRATE
     Indication: ANGINA PECTORIS
     Dosage: 100 MG, ONE TABLET BY MOUTH EVERY THREE DAYS TO FOUR DAYS
     Route: 048
  7. VIAGRA [Suspect]
     Active Substance: SILDENAFIL CITRATE
     Indication: CARDIAC DISORDER
     Dosage: 50 MG, ALTERNATE DAY, (ONE TABLET BY MOUTH EVERY OTHER DAY)
     Route: 048
     Dates: start: 201610, end: 201611
  8. HYDROCODONE [Concomitant]
     Active Substance: HYDROCODONE
     Indication: HEADACHE
  9. PRAVASTATIN. [Concomitant]
     Active Substance: PRAVASTATIN
     Indication: BLOOD CHOLESTEROL INCREASED
     Dosage: 40 MG, 1X/DAY, (ONE TABLET BY MOUTH ONCE A DAY)
     Route: 048
     Dates: start: 2015

REACTIONS (4)
  - Product use in unapproved indication [Unknown]
  - Drug effective for unapproved indication [Unknown]
  - Intentional product misuse [Unknown]
  - Off label use [Unknown]

NARRATIVE: CASE EVENT DATE: 201610
